FAERS Safety Report 6083034-3 (Version None)
Quarter: 2009Q1

REPORT INFORMATION
  Report Type: 
  Country: None (occurrence: None)
  Receive Date: 20090218
  Receipt Date: 20090218
  Transmission Date: 20090719
  Serious: Yes (Hospitalization)
  Sender: FDA-Public Use
  Company Number: DE-ABBOTT-08P-062-0491273-00

PATIENT
  Sex: Female
  Weight: 90 kg

DRUGS (2)
  1. HUMIRA [Suspect]
     Indication: PSORIATIC ARTHROPATHY
     Route: 058
     Dates: start: 20071101, end: 20081031
  2. TILIDIN [Concomitant]
     Indication: PAIN
     Dosage: IF NECESSARY
     Route: 048

REACTIONS (10)
  - ARTHRALGIA [None]
  - ARTHRITIS [None]
  - C-REACTIVE PROTEIN INCREASED [None]
  - DRUG INEFFECTIVE [None]
  - INFECTION [None]
  - JOINT SWELLING [None]
  - MUSCULOSKELETAL PAIN [None]
  - OSTEOARTHRITIS [None]
  - PSORIATIC ARTHROPATHY [None]
  - RED BLOOD CELL SEDIMENTATION RATE INCREASED [None]
